FAERS Safety Report 5913875-1 (Version None)
Quarter: 2008Q4

REPORT INFORMATION
  Report Type: 
  Country: None (occurrence: None)
  Receive Date: 20081009
  Receipt Date: 20081001
  Transmission Date: 20090506
  Serious: Yes (Hospitalization)
  Sender: FDA-Public Use
  Company Number: B0515689A

PATIENT
  Age: 71 Year
  Sex: Female

DRUGS (8)
  1. AUGMENTIN '125' [Suspect]
     Dosage: 1UNIT PER DAY
     Route: 042
     Dates: start: 20080107, end: 20080108
  2. LOVENOX [Suspect]
     Dosage: 4000IU PER DAY
     Route: 058
     Dates: start: 20080107, end: 20080108
  3. ORGARAN [Concomitant]
     Indication: DRUG USE FOR UNKNOWN INDICATION
  4. PERFALGAN [Concomitant]
     Route: 042
     Dates: start: 20080108, end: 20080108
  5. SOPROL [Concomitant]
     Indication: DRUG USE FOR UNKNOWN INDICATION
     Dosage: 10MG PER DAY
     Route: 048
     Dates: end: 20080103
  6. FLUDEX [Concomitant]
     Indication: DRUG USE FOR UNKNOWN INDICATION
     Dosage: 1.5MG PER DAY
     Route: 048
     Dates: end: 20080103
  7. GAVISCON [Concomitant]
     Indication: DRUG USE FOR UNKNOWN INDICATION
     Dosage: 1UNIT PER DAY
     Route: 048
  8. KALEORID [Concomitant]
     Indication: DRUG USE FOR UNKNOWN INDICATION
     Dosage: 600MG PER DAY
     Route: 048

REACTIONS (10)
  - DEEP VEIN THROMBOSIS [None]
  - PIGMENTATION DISORDER [None]
  - PLATELET COUNT DECREASED [None]
  - RASH [None]
  - RASH PAPULAR [None]
  - SCAR [None]
  - SKIN LESION [None]
  - SKIN NECROSIS [None]
  - THROMBOPHLEBITIS SUPERFICIAL [None]
  - URTICARIA [None]
